FAERS Safety Report 4884965-X (Version None)
Quarter: 2006Q1

REPORT INFORMATION
  Report Type: 
  Country: None (occurrence: None)
  Receive Date: 20060119
  Receipt Date: 20060109
  Transmission Date: 20060701
  Serious: Yes (Hospitalization, Disabling, Other)
  Sender: FDA-Public Use
  Company Number: US-JNJFOC-20041205606

PATIENT
  Sex: Female

DRUGS (16)
  1. DURAGESIC-100 [Suspect]
     Route: 062
  2. DURAGESIC-100 [Suspect]
     Route: 062
  3. DURAGESIC-100 [Suspect]
     Route: 062
  4. PERCOCET [Concomitant]
  5. PERCOCET [Concomitant]
     Dosage: AS NECESSARY
  6. TENORMIN [Concomitant]
  7. VALIUM [Concomitant]
  8. VICODIN ES [Concomitant]
  9. VICODIN ES [Concomitant]
     Dosage: 5 MG HYDROCODONE/500 MG ACETAMINOPHEN
  10. ELMIRON [Concomitant]
  11. ELMIRON [Concomitant]
  12. DITROPAN [Concomitant]
  13. MACROBID [Concomitant]
  14. PROVENTIL-HFA [Concomitant]
     Dosage: 2 PUFFS, 4 IN 1 DAY
  15. VANCERIL [Concomitant]
     Dosage: 2 PUFFS, 2 IN 1 DAY
  16. SOY ESTROGEN [Concomitant]

REACTIONS (33)
  - ABDOMINAL PAIN [None]
  - ALANINE AMINOTRANSFERASE INCREASED [None]
  - ANXIETY [None]
  - APPLICATION SITE IRRITATION [None]
  - APPLICATION SITE SCAR [None]
  - ASPARTATE AMINOTRANSFERASE INCREASED [None]
  - BLOOD ALKALINE PHOSPHATASE INCREASED [None]
  - BRONCHITIS [None]
  - CARDIAC FAILURE CONGESTIVE [None]
  - CHEST DISCOMFORT [None]
  - CYSTITIS INTERSTITIAL [None]
  - DERMATITIS CONTACT [None]
  - DEVICE FAILURE [None]
  - DIARRHOEA [None]
  - DYSPNOEA [None]
  - EMOTIONAL DISTRESS [None]
  - HYPERTENSION [None]
  - INSOMNIA [None]
  - LIVER FUNCTION TEST ABNORMAL [None]
  - NAUSEA [None]
  - OEDEMA [None]
  - PAIN [None]
  - PELVIC PAIN [None]
  - PNEUMONIA [None]
  - PNEUMOTHORAX [None]
  - SEXUAL DYSFUNCTION [None]
  - SKIN DISCOLOURATION [None]
  - SOMNOLENCE [None]
  - STATUS ASTHMATICUS [None]
  - THERAPEUTIC RESPONSE DECREASED [None]
  - URINARY INCONTINENCE [None]
  - VOMITING [None]
  - WHITE BLOOD CELL COUNT INCREASED [None]
